FAERS Safety Report 4836122-0 (Version None)
Quarter: 2005Q4

REPORT INFORMATION
  Report Type: 
  Country: None (occurrence: None)
  Receive Date: 20051123
  Receipt Date: 20051004
  Transmission Date: 20060501
  Serious: Yes (Hospitalization, Disabling)
  Sender: FDA-Public Use
  Company Number: US-MERCK-0510USA03186

PATIENT
  Age: 38 Year
  Sex: Male
  Weight: 69 kg

DRUGS (5)
  1. VIOXX [Suspect]
     Indication: JOINT INJURY
     Route: 048
     Dates: start: 20000101, end: 20030101
  2. PROPOXYPHENE NAPSYLATE [Concomitant]
     Route: 065
  3. CLONAZEPAM [Concomitant]
     Route: 065
  4. HYDROCODONE HYDROCHLORIDE [Concomitant]
     Route: 065
  5. IBUPROFEN [Concomitant]
     Route: 065

REACTIONS (3)
  - JOINT INJURY [None]
  - MYOCARDIAL INFARCTION [None]
  - ROTATOR CUFF SYNDROME [None]
